FAERS Safety Report 9074253 (Version 1)
Quarter: 2013Q1

REPORT INFORMATION
  Report Type: Report from Study
  Country: US (occurrence: US)
  Receive Date: 20130128
  Receipt Date: 20130128
  Transmission Date: 20140127
  Serious: No
  Sender: FDA-Public Use
  Company Number: US-ABBOTT-12P-163-0916280-00

PATIENT
  Age: 61 Year
  Sex: Female

DRUGS (5)
  1. HUMIRA 40 MG/0.8 ML PEN [Suspect]
     Indication: CROHN^S DISEASE
     Dosage: 160MG AND 80MG LOADING DOSES
     Dates: start: 20120226
  2. MOBIC [Concomitant]
     Indication: ARTHRITIS
     Dosage: 7.5 MG DAILY
  3. TRICOR [Concomitant]
     Indication: BLOOD TRIGLYCERIDES
     Dosage: 145 MG DAILY
  4. TOPROL [Concomitant]
     Indication: BLOOD PRESSURE
     Dosage: 25 MG DAILY
  5. PREVACID [Concomitant]
     Indication: PRODUCT USED FOR UNKNOWN INDICATION
     Dosage: DAILY

REACTIONS (1)
  - Visual impairment [Not Recovered/Not Resolved]
